FAERS Safety Report 9316935 (Version 1)
Quarter: 2013Q2

REPORT INFORMATION
  Report Type: Spontaneous
  Country: US (occurrence: None)
  Receive Date: 20130523
  Receipt Date: 20130523
  Transmission Date: 20140414
  Serious: Yes (Other)
  Sender: FDA-Public Use
  Company Number: IPC201305-000199

PATIENT
  Age: 54 Year
  Sex: 0

DRUGS (2)
  1. ATENOLOL (ATENOLOL) (ATENOLOL) [Suspect]
  2. BUPROPION (BUPROPION) (BUPROPION) [Suspect]

REACTIONS (4)
  - Stevens-Johnson syndrome [None]
  - Toxic epidermal necrolysis [None]
  - Blindness [None]
  - Intraocular pressure increased [None]
